FAERS Safety Report 8507941-4 (Version None)
Quarter: 2012Q3

REPORT INFORMATION
  Report Type: 
  Country: None (occurrence: None)
  Receive Date: 20120709
  Receipt Date: 20120709
  Transmission Date: 20120928
  Serious: No
  Sender: FDA-Public Use
  Company Number: None

PATIENT

DRUGS (1)
  1. PHENYTOIN [Suspect]

REACTIONS (13)
  - MEDICATION ERROR [None]
  - INCORRECT DOSE ADMINISTERED [None]
  - INFECTION [None]
  - BALANCE DISORDER [None]
  - NYSTAGMUS [None]
  - ANTICONVULSANT DRUG LEVEL INCREASED [None]
  - HEADACHE [None]
  - URINARY TRACT INFECTION [None]
  - ATAXIA [None]
  - ANTICONVULSANT DRUG LEVEL DECREASED [None]
  - DIZZINESS [None]
  - BLOOD POTASSIUM DECREASED [None]
  - DIPLOPIA [None]
